FAERS Safety Report 20933384 (Version 1)
Quarter: 2022Q2

REPORT INFORMATION
  Report Type: Spontaneous
  Country: US (occurrence: US)
  Receive Date: 20220608
  Receipt Date: 20220608
  Transmission Date: 20220721
  Serious: Yes (Other)
  Sender: FDA-Public Use
  Company Number: US-PFIZER INC-202200797944

PATIENT
  Age: 65 Year
  Sex: Female
  Weight: 85.79 kg

DRUGS (2)
  1. IBRANCE [Suspect]
     Active Substance: PALBOCICLIB
     Indication: Breast cancer female
     Dosage: 75 MG, CYCLIC (75 MG ONE TABLET ONE TIME A DAY FOR A 21-DAY CYCLE)
     Dates: start: 20200721
  2. LETROZOLE [Concomitant]
     Active Substance: LETROZOLE
     Dosage: 2.5 MG, 1X/DAY

REACTIONS (4)
  - Foreign body in throat [Unknown]
  - Dysphagia [Unknown]
  - Off label use [Unknown]
  - Wrong technique in product usage process [Unknown]
